FAERS Safety Report 10761903 (Version 3)
Quarter: 2015Q4

REPORT INFORMATION
  Report Type: Report from Study
  Country: FR (occurrence: FR)
  Receive Date: 20150204
  Receipt Date: 20151209
  Transmission Date: 20160304
  Serious: Yes (Hospitalization)
  Sender: FDA-Public Use
  Company Number: FR-SA-2015SA011669

PATIENT
  Age: 51 Year
  Sex: Male
  Weight: 80 kg

DRUGS (17)
  1. SOLUPRED [Concomitant]
     Active Substance: PREDNISOLONE
     Indication: ANAL FISSURE
     Route: 048
     Dates: start: 20141210, end: 201501
  2. TRAMADOL. [Concomitant]
     Active Substance: TRAMADOL
     Indication: ANAL FISSURE
     Route: 048
     Dates: start: 201501
  3. BLINDED THERAPY [Suspect]
     Active Substance: INVESTIGATIONAL PRODUCT
     Indication: NON-SMALL CELL LUNG CANCER
     Dosage: DOSE: 1 IN 1 CYCLICAL (100 ML, CYCLIC VIA IV INFUSION ON DAY 1,8 AND 15 OF EACH 21 DAY CYCLE
     Route: 042
     Dates: start: 20150108, end: 20150108
  4. INEXIUM [Concomitant]
     Active Substance: ESOMEPRAZOLE
     Indication: ANAL FISSURE
     Route: 048
     Dates: start: 20150109
  5. PROFENID [Concomitant]
     Active Substance: KETOPROFEN
     Indication: ANAL FISSURE
     Route: 048
     Dates: start: 20150109
  6. DOCETAXEL. [Suspect]
     Active Substance: DOCETAXEL
     Indication: NON-SMALL CELL LUNG CANCER
     Dosage: DOSE: 1 IN 1 CYCLICAL, 75 MG/M2 CYCLIC IV INFUSION ON DAY 1 OF EACH 21 DAY CYCLE, 144MG
     Dates: start: 20150102, end: 20150102
  7. TITANOREINE [Concomitant]
     Active Substance: CARRAGEENAN\TITANIUM\ZINC
     Indication: ANAL FISSURE
     Route: 058
     Dates: start: 201501
  8. TOPALGIC [Concomitant]
     Active Substance: TRAMADOL
     Indication: ANAL FISSURE
     Route: 048
     Dates: start: 20150109
  9. SOLUPRED [Concomitant]
     Active Substance: PREDNISOLONE
     Indication: ANAL FISSURE
     Route: 048
     Dates: start: 20150123
  10. DAFLON [Concomitant]
     Active Substance: DIOSMIN\HESPERIDIN
     Indication: ANAL FISSURE
     Route: 048
     Dates: start: 20150109
  11. BLINDED THERAPY [Suspect]
     Active Substance: INVESTIGATIONAL PRODUCT
     Indication: NON-SMALL CELL LUNG CANCER
     Dosage: DOSE: 1 IN 1 CYCLICAL (100 ML, CYCLIC VIA IV INFUSION ON DAY 1,8 AND 15 OF EACH 21 DAY CYCLE
     Route: 042
     Dates: start: 20150102, end: 20150102
  12. IMOVANE [Concomitant]
     Active Substance: ZOPICLONE
     Indication: INSOMNIA
     Route: 048
     Dates: start: 20130722
  13. KARDEGIC [Concomitant]
     Active Substance: ASPIRIN LYSINE
     Indication: TRANSIENT ISCHAEMIC ATTACK
     Route: 048
     Dates: start: 20141127
  14. XATRAL [Concomitant]
     Active Substance: ALFUZOSIN
     Indication: ANAL FISSURE
     Route: 048
     Dates: start: 20150109
  15. FRAGMIN [Concomitant]
     Active Substance: DALTEPARIN SODIUM
     Route: 030
     Dates: start: 20150109
  16. PROCTOLOG [Concomitant]
     Active Substance: TRIMEBUTINE
     Indication: ANAL FISSURE
     Dosage: 120/10 MG
     Dates: start: 201501
  17. SPECIAFOLDINE [Concomitant]
     Active Substance: FOLIC ACID
     Indication: ANAEMIA
     Route: 048
     Dates: start: 20130719, end: 20141231

REACTIONS (1)
  - Anal fissure [Recovered/Resolved]

NARRATIVE: CASE EVENT DATE: 20150109
